FAERS Safety Report 8563644-1 (Version None)
Quarter: 2012Q3

REPORT INFORMATION
  Report Type: 
  Country: None (occurrence: None)
  Receive Date: 20120803
  Receipt Date: 20120723
  Transmission Date: 20120928
  Serious: No
  Sender: FDA-Public Use
  Company Number: US-BIOGENIDEC-2012BI010147

PATIENT
  Age: 32 Year
  Sex: Female

DRUGS (1)
  1. TYSABRI [Suspect]
     Indication: MULTIPLE SCLEROSIS
     Route: 042
     Dates: start: 20110803, end: 20120313

REACTIONS (6)
  - PHARYNGITIS STREPTOCOCCAL [None]
  - IMMUNODEFICIENCY COMMON VARIABLE [None]
  - EAR INFECTION [None]
  - NASOPHARYNGITIS [None]
  - EAR PAIN [None]
  - SINUSITIS [None]
